FAERS Safety Report 5305905-5 (Version None)
Quarter: 2007Q2

REPORT INFORMATION
  Report Type: 
  Country: None (occurrence: None)
  Receive Date: 20070424
  Receipt Date: 20070423
  Transmission Date: 20071010
  Serious: Yes (Life-Threatening, Hospitalization, Other)
  Sender: FDA-Public Use
  Company Number: US-GLAXOSMITHKLINE-A0648399A

PATIENT
  Age: 45 Year
  Sex: Female

DRUGS (12)
  1. TYKERB [Suspect]
     Indication: BREAST CANCER
     Dosage: 250MG PER DAY
     Route: 048
     Dates: start: 20070316, end: 20070411
  2. PREVACID [Concomitant]
  3. CALCIUM [Concomitant]
  4. FLONASE [Concomitant]
  5. ARIMIDEX [Concomitant]
  6. VITAMINS [Concomitant]
  7. ESTER C [Concomitant]
  8. OSTEOBIFLEX [Concomitant]
  9. AMBIEN [Concomitant]
  10. ATIVAN [Concomitant]
  11. VITAMIN E [Concomitant]
  12. HERCEPTIN [Concomitant]

REACTIONS (2)
  - ALVEOLITIS ALLERGIC [None]
  - DIARRHOEA [None]
